FAERS Safety Report 4781639-0 (Version None)
Quarter: 2005Q3

REPORT INFORMATION
  Report Type: 
  Country: None (occurrence: None)
  Receive Date: 20050927
  Receipt Date: 20050905
  Transmission Date: 20060218
  Serious: Yes (Hospitalization)
  Sender: FDA-Public Use
  Company Number: DE_050916946

PATIENT
  Age: 70 Year
  Sex: Male

DRUGS (6)
  1. CYMBALTA [Suspect]
     Indication: BIPOLAR DISORDER
     Dosage: 60 MG
     Dates: start: 20050101
  2. TRAMADOL HCL [Concomitant]
  3. LANTUS [Concomitant]
  4. PANTOPRAZOLE SODIUM [Concomitant]
  5. NOVORAPID (INSULIN ASPART) [Concomitant]
  6. CAPVAL (PAPAVER SOMNIFERUM RESIN) [Concomitant]

REACTIONS (4)
  - BACK PAIN [None]
  - CONDITION AGGRAVATED [None]
  - DEPRESSION [None]
  - SUICIDAL IDEATION [None]
